FAERS Safety Report 15723866 (Version 1)
Quarter: 2018Q4

REPORT INFORMATION
  Report Type: Spontaneous
  Country: US (occurrence: US)
  Receive Date: 20181214
  Receipt Date: 20181214
  Transmission Date: 20190205
  Serious: Yes (Hospitalization)
  Sender: FDA-Public Use
  Company Number: PHHY2018US178369

PATIENT
  Age: 15 Month
  Sex: Male

DRUGS (1)
  1. AMPHETAMINE+DEXTROAMPHETAMINE [Suspect]
     Active Substance: AMPHETAMINE ADIPATE\DEXTROAMPHETAMINE
     Indication: PRODUCT USED FOR UNKNOWN INDICATION
     Route: 065

REACTIONS (7)
  - Metabolic acidosis [Recovered/Resolved]
  - Sinus tachycardia [Recovered/Resolved]
  - Faeces hard [Recovered/Resolved]
  - Body temperature decreased [Recovered/Resolved]
  - Crying [Recovered/Resolved]
  - Prescription drug used without a prescription [Recovered/Resolved]
  - Hallucination [Recovered/Resolved]
